FAERS Safety Report 19890883 (Version 1)
Quarter: 2021Q3

REPORT INFORMATION
  Report Type: Spontaneous
  Country: US (occurrence: US)
  Receive Date: 20210928
  Receipt Date: 20210928
  Transmission Date: 20211014
  Serious: Yes (Other)
  Sender: FDA-Public Use
  Company Number: US-GW PHARMA-202106USGW03191

PATIENT

DRUGS (2)
  1. EPIDIOLEX [Suspect]
     Active Substance: CANNABIDIOL
     Dosage: 100 MILLIGRAM
     Route: 048
  2. EPIDIOLEX [Suspect]
     Active Substance: CANNABIDIOL
     Indication: LENNOX-GASTAUT SYNDROME
     Dosage: 250 MILLIGRAM, BID (WITH FOOD)
     Route: 048

REACTIONS (3)
  - Autism spectrum disorder [Unknown]
  - Product dose omission issue [Unknown]
  - Product distribution issue [Unknown]
